FAERS Safety Report 8225876-1 (Version None)
Quarter: 2012Q1

REPORT INFORMATION
  Report Type: 
  Country: None (occurrence: None)
  Receive Date: 20120321
  Receipt Date: 20120308
  Transmission Date: 20120608
  Serious: Yes (Hospitalization, Congenital Anomaly)
  Sender: FDA-Public Use
  Company Number: DE-MYLANLABS-2012S1005197

PATIENT
  Age: 0 Year
  Sex: Male
  Weight: 3.2 kg

DRUGS (4)
  1. TILIDINE [Suspect]
     Dosage: 8 [MG/D ]/ TILIDIN PLUS IN THE EVENING
     Route: 064
     Dates: start: 20090908, end: 20100616
  2. AMITRIPTYLINE HCL [Suspect]
     Dosage: 75 [MG/D ]
     Route: 064
     Dates: start: 20090908, end: 20100616
  3. MESALAZIN [Concomitant]
     Dosage: THREE WEEKS IN FEBRUARY 2010
     Route: 064
  4. INSULIN [Concomitant]
     Route: 064

REACTIONS (4)
  - CONGENITAL CHOROID PLEXUS CYST [None]
  - CYST [None]
  - MATERNAL EXPOSURE DURING PREGNANCY [None]
  - CONVULSION NEONATAL [None]
